FAERS Safety Report 17588830 (Version 1)
Quarter: 2020Q1

REPORT INFORMATION
  Report Type: Report from Study
  Country: CO (occurrence: CO)
  Receive Date: 20200327
  Receipt Date: 20200327
  Transmission Date: 20200409
  Serious: Yes (Hospitalization)
  Sender: FDA-Public Use
  Company Number: CO-ROCHE-2239493

PATIENT
  Sex: Female

DRUGS (2)
  1. KADCYLA [Suspect]
     Active Substance: ADO-TRASTUZUMAB EMTANSINE
     Indication: PRODUCT USED FOR UNKNOWN INDICATION
     Route: 065
  2. MORPHINE [Concomitant]
     Active Substance: MORPHINE

REACTIONS (10)
  - Burning sensation [Unknown]
  - Hepatitis [Unknown]
  - Pneumonitis [Unknown]
  - Asthenia [Unknown]
  - Abdominal pain [Unknown]
  - Breast pain [Unknown]
  - Pain [Unknown]
  - Hypersomnia [Unknown]
  - Somnolence [Unknown]
  - Depressed mood [Unknown]
